FAERS Safety Report 22001686 (Version 3)
Quarter: 2023Q2

REPORT INFORMATION
  Report Type: Other
  Country: FR (occurrence: FR)
  Receive Date: 20230216
  Receipt Date: 20230621
  Transmission Date: 20230721
  Serious: Yes (Death, Hospitalization, Other)
  Sender: FDA-Public Use
  Company Number: FR-Blueprint Medicines Corporation-SO-FR-2023-000287

PATIENT

DRUGS (3)
  1. AVAPRITINIB [Suspect]
     Active Substance: AVAPRITINIB
     Indication: Systemic mastocytosis
     Route: 065
  2. AVAPRITINIB [Suspect]
     Active Substance: AVAPRITINIB
     Indication: Systemic mastocytosis
  3. LANSOPRAZOLE [Concomitant]
     Active Substance: LANSOPRAZOLE
     Indication: Prophylaxis
     Route: 048

REACTIONS (3)
  - Cerebral haemorrhage [Fatal]
  - Acute myeloid leukaemia refractory [Fatal]
  - COVID-19 [Unknown]

NARRATIVE: CASE EVENT DATE: 20221117
